FAERS Safety Report 18817009 (Version 3)
Quarter: 2021Q2

REPORT INFORMATION
  Report Type: Spontaneous
  Country: US (occurrence: US)
  Receive Date: 20210201
  Receipt Date: 20210412
  Transmission Date: 20210717
  Serious: Yes (Hospitalization)
  Sender: FDA-Public Use
  Company Number: US-PFIZER INC-2020384828

PATIENT
  Age: 88 Year
  Sex: Female
  Weight: 82.54 kg

DRUGS (1)
  1. IBRANCE [Suspect]
     Active Substance: PALBOCICLIB
     Dosage: 100 MG

REACTIONS (4)
  - Illness [Unknown]
  - Left ventricular failure [Unknown]
  - Hypothyroidism [Unknown]
  - Urinary tract infection [Unknown]
